FAERS Safety Report 6321275-8 (Version None)
Quarter: 2009Q3

REPORT INFORMATION
  Report Type: 
  Country: None (occurrence: None)
  Receive Date: 20090822
  Receipt Date: 20090107
  Transmission Date: 20100115
  Serious: No
  Sender: FDA-Public Use
  Company Number: US-ABBOTT-09P-163-0496442-00

PATIENT
  Sex: Male
  Weight: 73.094 kg

DRUGS (5)
  1. NIASPAN [Suspect]
     Indication: BLOOD TRIGLYCERIDES INCREASED
     Route: 048
     Dates: start: 20080701, end: 20080701
  2. LITHIUM [Concomitant]
     Indication: BIPOLAR DISORDER
  3. PROSCAR [Concomitant]
     Indication: DRUG USE FOR UNKNOWN INDICATION
  4. OLANZAPINE [Concomitant]
     Indication: BIPOLAR DISORDER
  5. ASPIRIN [Concomitant]
     Indication: DRUG USE FOR UNKNOWN INDICATION

REACTIONS (2)
  - FLUSHING [None]
  - HEADACHE [None]
